FAERS Safety Report 8479830-5 (Version None)
Quarter: 2012Q2

REPORT INFORMATION
  Report Type: 
  Country: None (occurrence: None)
  Receive Date: 20120618
  Receipt Date: 20120608
  Transmission Date: 20120825
  Serious: Yes (Other)
  Sender: FDA-Public Use
  Company Number: DSA_57885_2012

PATIENT

DRUGS (6)
  1. DOXORUBICIN HCL [Suspect]
     Indication: OESOPHAGEAL CARCINOMA
     Dosage: (35 MG/M2, EVERY CYCLE)
  2. ALL OTHER THERAPEUTIC PRODUCTS [Concomitant]
  3. ANTIEMETICS AND ANTINAUSEANTS [Concomitant]
  4. FLUOROURACIL [Suspect]
     Indication: OESOPHAGEAL CARCINOMA
     Dosage: (700 MG/M2, DAILY INTRAVENOUS (NOT OTHERWISE SPECIFIED))
     Route: 042
  5. CISPLATIN [Suspect]
     Indication: OESOPHAGEAL CARCINOMA
     Dosage: (70 MG/M2, EVERY CYCLE INTRAVENOUS (NOT OTHERWISE SPECIFIED))
     Route: 042
  6. I.V. SOLUTIONS [Concomitant]

REACTIONS (1)
  - DIARRHOEA [None]
